FAERS Safety Report 5514585-5 (Version None)
Quarter: 2007Q4

REPORT INFORMATION
  Report Type: 
  Country: None (occurrence: None)
  Receive Date: 20071113
  Receipt Date: 20071102
  Transmission Date: 20080405
  Serious: Yes (Life-Threatening, Hospitalization)
  Sender: FDA-Public Use
  Company Number: B0494862A

PATIENT
  Age: 34 Year
  Sex: Male

DRUGS (17)
  1. AUGMENTIN '500' [Suspect]
     Indication: ANAL ABSCESS
     Dosage: 1000MG THREE TIMES PER DAY
     Route: 048
     Dates: start: 20070706, end: 20070718
  2. AUGMENTIN '500' [Suspect]
     Indication: DRUG USE FOR UNKNOWN INDICATION
     Route: 065
  3. OFLOCET [Suspect]
     Indication: ANAL ABSCESS
     Dosage: 200MG TWICE PER DAY
     Route: 048
     Dates: start: 20070706, end: 20070718
  4. AVODART [Concomitant]
     Route: 065
  5. SERETIDE [Concomitant]
     Route: 065
  6. ACETAMINOPHEN [Concomitant]
     Route: 065
  7. GINKOR FORT [Concomitant]
     Route: 065
  8. LASIX [Concomitant]
     Route: 065
  9. LEXOMIL [Concomitant]
     Route: 065
  10. PREVISCAN [Concomitant]
     Route: 065
  11. SOPROL [Concomitant]
     Route: 065
  12. RAMIPRIL [Concomitant]
     Route: 065
  13. XATRAL [Concomitant]
     Route: 065
  14. PROSCAR [Concomitant]
     Route: 065
  15. ELISOR [Concomitant]
     Route: 065
  16. DAFLON [Concomitant]
     Route: 065
  17. LACTULOSE [Concomitant]
     Route: 065

REACTIONS (12)
  - ARRHYTHMIA [None]
  - ASTHENIA [None]
  - BLOOD CREATININE INCREASED [None]
  - CLOSTRIDIAL INFECTION [None]
  - CLOSTRIDIUM DIFFICILE TOXIN TEST POSITIVE [None]
  - DEHYDRATION [None]
  - DIARRHOEA [None]
  - DRUG INTOLERANCE [None]
  - HYPOKALAEMIA [None]
  - PSEUDOMEMBRANOUS COLITIS [None]
  - RENAL FAILURE ACUTE [None]
  - VOMITING [None]
